FAERS Safety Report 7419181-0 (Version None)
Quarter: 2011Q2

REPORT INFORMATION
  Report Type: 
  Country: None (occurrence: None)
  Receive Date: 20110415
  Receipt Date: 20110217
  Transmission Date: 20111010
  Serious: No
  Sender: FDA-Public Use
  Company Number: US-B.I. PHARMACEUTICALS,INC./RIDGEFIELD-2011-BP-05804BP

PATIENT
  Sex: Male

DRUGS (14)
  1. GLUCOSAMINE [Concomitant]
     Indication: ARTHRITIS
  2. MULTI-VITAMIN [Concomitant]
     Indication: PROPHYLAXIS
  3. RANTIDINE [Concomitant]
     Indication: GASTROOESOPHAGEAL REFLUX DISEASE
  4. AVODART [Concomitant]
     Indication: PROSTATOMEGALY
  5. LOVAZA [Concomitant]
     Indication: PROPHYLAXIS
  6. CLONAZEPAM [Concomitant]
     Indication: POST POLIO SYNDROME
  7. PRADAXA [Suspect]
     Indication: ATRIAL FIBRILLATION
     Dosage: 300 MG
     Route: 048
     Dates: start: 20110114
  8. LIPITOR [Concomitant]
     Indication: BLOOD CHOLESTEROL INCREASED
     Dates: start: 20101201
  9. FLOMAX [Concomitant]
     Indication: DYSURIA
  10. LUMIGAN [Concomitant]
     Indication: INTRAOCULAR PRESSURE INCREASED
  11. ASCORBIC ACID [Concomitant]
     Indication: PROPHYLAXIS
  12. ALLOPURINOL [Concomitant]
     Indication: BLOOD URIC ACID INCREASED
  13. ATENOLOL [Concomitant]
     Indication: HYPERTENSION
  14. DIGOXIN [Concomitant]
     Indication: ATRIAL FIBRILLATION

REACTIONS (2)
  - ABDOMINAL DISCOMFORT [None]
  - FLATULENCE [None]
